FAERS Safety Report 22293955 (Version 1)
Quarter: 2023Q2

REPORT INFORMATION
  Report Type: Spontaneous
  Country: SE (occurrence: SE)
  Receive Date: 20230508
  Receipt Date: 20230508
  Transmission Date: 20230722
  Serious: Yes (Other)
  Sender: FDA-Public Use
  Company Number: SE-SUN PHARMACEUTICAL INDUSTRIES LTD-2023R1-387592

PATIENT
  Age: 45 Year
  Sex: Male

DRUGS (6)
  1. CLOZAPINE [Suspect]
     Active Substance: CLOZAPINE
     Indication: Schizoaffective disorder
     Dosage: 600 MILLIGRAM, DAILY
     Route: 065
  2. CLOZAPINE [Suspect]
     Active Substance: CLOZAPINE
     Dosage: 450 MILLIGRAM, DAILY
     Route: 065
  3. LITHIUM [Concomitant]
     Active Substance: LITHIUM
     Indication: Schizoaffective disorder
     Dosage: UNK (6 X 42 MG)
     Route: 065
  4. PERPHENAZINE [Concomitant]
     Active Substance: PERPHENAZINE
     Indication: Schizoaffective disorder
     Dosage: UNK (24 MG)
     Route: 065
  5. VALPROATE [Concomitant]
     Active Substance: VALPROIC ACID
     Indication: Schizoaffective disorder
     Dosage: UNK (600 MG)
     Route: 065
  6. VALPROATE [Concomitant]
     Active Substance: VALPROIC ACID
     Dosage: UNK (1200 MG)
     Route: 065

REACTIONS (4)
  - Therapeutic response decreased [Unknown]
  - Salivary hypersecretion [Recovering/Resolving]
  - Constipation [Recovered/Resolved]
  - Enuresis [Recovering/Resolving]
